FAERS Safety Report 9846375 (Version 2)
Quarter: 2014Q1

REPORT INFORMATION
  Report Type: Report from Study
  Country: FR (occurrence: FR)
  Receive Date: 20140127
  Receipt Date: 20140304
  Transmission Date: 20141002
  Serious: Yes (Hospitalization)
  Sender: FDA-Public Use
  Company Number: PHHY2014FR008929

PATIENT
  Age: 89 Year
  Sex: Female
  Weight: 38 kg

DRUGS (4)
  1. ACLASTA/ZOLEDRONATE [Suspect]
     Indication: OSTEOPOROTIC FRACTURE
     Dosage: 5 MG, UNK
     Route: 042
     Dates: start: 20120615
  2. CARDENSIEL [Concomitant]
     Indication: HYPERTENSION
     Dosage: 2.5 MG, QD
  3. UVEDOSE [Concomitant]
     Dates: start: 2010
  4. ALDACTAZINE [Concomitant]

REACTIONS (8)
  - Epilepsy [Recovered/Resolved]
  - Confusional state [Recovered/Resolved]
  - Disorientation [Recovered/Resolved]
  - Aphasia [Recovered/Resolved]
  - Malaise [Unknown]
  - Musculoskeletal stiffness [Unknown]
  - Abdominal pain [Recovered/Resolved]
  - Convulsion [Recovered/Resolved]
